FAERS Safety Report 18800229 (Version 1)
Quarter: 2021Q1

REPORT INFORMATION
  Report Type: Spontaneous
  Country: US (occurrence: US)
  Receive Date: 20210128
  Receipt Date: 20210128
  Transmission Date: 20210419
  Serious: Yes (Life-Threatening, Hospitalization)
  Sender: FDA-Public Use
  Company Number: None

PATIENT
  Age: 66 Year
  Sex: Male
  Weight: 121.5 kg

DRUGS (10)
  1. VITAMIN D 2000 UNITS [Concomitant]
     Dates: start: 20210124
  2. PREDNISONE 20MG [Concomitant]
     Active Substance: PREDNISONE
     Dates: start: 20210124
  3. LEVEMIR 26 UNITS [Concomitant]
     Dates: start: 20210124
  4. REMDESIVIR. [Suspect]
     Active Substance: REMDESIVIR
     Indication: COVID-19
     Route: 042
     Dates: start: 20210124, end: 20210128
  5. VITAMIN C 500MG [Concomitant]
     Dates: start: 20210124
  6. ASPIRIN 81MG [Concomitant]
     Active Substance: ASPIRIN
     Dates: start: 20210124
  7. ZINC SULFATE 220MG [Concomitant]
     Dates: start: 20210124
  8. DOXYCYCLINE 100MG [Concomitant]
     Active Substance: DOXYCYCLINE
     Dates: start: 20210124
  9. PROTONIX [Concomitant]
     Active Substance: PANTOPRAZOLE SODIUM
     Dates: start: 20210124
  10. LOVENOX 120MG [Concomitant]
     Dates: start: 20210124

REACTIONS (3)
  - Aspartate aminotransferase increased [None]
  - Cardio-respiratory arrest [None]
  - Blood creatinine increased [None]

NARRATIVE: CASE EVENT DATE: 20210128
